FAERS Safety Report 8778656 (Version 1)
Quarter: 2012Q4

REPORT INFORMATION
  Report Type: 
  Country: US (occurrence: US)
  Receive Date: 20120912
  Receipt Date: 20120912
  Transmission Date: 20130627
  Serious: Yes (Hospitalization, Other)
  Sender: FDA-Public Use
  Company Number: US-ROCHE-1092159

PATIENT
  Sex: Male

DRUGS (4)
  1. AVASTIN [Suspect]
     Indication: LUNG NEOPLASM MALIGNANT
     Route: 065
  2. AVASTIN [Suspect]
     Indication: BRAIN NEOPLASM MALIGNANT
  3. TARCEVA [Suspect]
     Indication: LUNG NEOPLASM MALIGNANT
     Route: 065
  4. TARCEVA [Suspect]
     Indication: BRAIN NEOPLASM MALIGNANT

REACTIONS (2)
  - Disease progression [Unknown]
  - Metastases to central nervous system [Unknown]
